FAERS Safety Report 21503413 (Version 2)
Quarter: 2023Q1

REPORT INFORMATION
  Report Type: Report from Study
  Country: MX (occurrence: None)
  Receive Date: 20221025
  Receipt Date: 20230321
  Transmission Date: 20230417
  Serious: Yes (Other)
  Sender: FDA-Public Use
  Company Number: 2022A353001

PATIENT
  Age: 699 Month
  Sex: Female
  Weight: 63 kg

DRUGS (15)
  1. DAPAGLIFLOZIN [Suspect]
     Active Substance: DAPAGLIFLOZIN
     Indication: Heart disease congenital
     Route: 048
     Dates: start: 202205
  2. DAPAGLIFLOZIN [Suspect]
     Active Substance: DAPAGLIFLOZIN
     Indication: Heart disease congenital
     Route: 048
     Dates: start: 20221001
  3. OMEPRAZOLE [Suspect]
     Active Substance: OMEPRAZOLE
     Route: 048
  4. METOPROLOL [Suspect]
     Active Substance: METOPROLOL
     Route: 048
     Dates: start: 20220901
  5. FUROSEMIDE [Concomitant]
     Active Substance: FUROSEMIDE
  6. AMIODARONE [Concomitant]
     Active Substance: AMIODARONE
     Dosage: (HALF EVERY 12 HOURS)
  7. SPIRONOLACTONE [Concomitant]
     Active Substance: SPIRONOLACTONE
     Dosage: ( ONE EVERY 12 HOURS)
  8. LOPRESSOR [Concomitant]
     Active Substance: METOPROLOL TARTRATE
     Dosage: (AVERAGE EVERY 12 HOURS)
  9. ALPRAZOLAM [Concomitant]
     Active Substance: ALPRAZOLAM
     Dosage: (DAILY AVERAGE)
  10. OMEPRAZOLE [Concomitant]
     Active Substance: OMEPRAZOLE
     Dosage: (ONE A DAY)
  11. DIGOXIN [Concomitant]
     Active Substance: DIGOXIN
  12. SENOSIDES [Concomitant]
  13. PREGABALIN [Concomitant]
     Active Substance: PREGABALIN
     Indication: Pain
     Dosage: (AT NIGHT)
  14. ENALAPRIL [Concomitant]
     Active Substance: ENALAPRIL
     Dosage: (MEDICATED EVERY 12 HOURS)
  15. LEVOTHYROXINE [Concomitant]
     Active Substance: LEVOTHYROXINE
     Indication: Thyroid disorder

REACTIONS (24)
  - Haemoglobin increased [Unknown]
  - Dizziness [Recovering/Resolving]
  - Dry mouth [Unknown]
  - Tooth disorder [Unknown]
  - Increased appetite [Unknown]
  - Gastritis [Unknown]
  - Constipation [Unknown]
  - Nausea [Unknown]
  - Headache [Recovering/Resolving]
  - Dysgeusia [Unknown]
  - Vomiting [Unknown]
  - Weight increased [Unknown]
  - Inflammation [Unknown]
  - Pain [Unknown]
  - Muscle spasms [Unknown]
  - Gastrointestinal sounds abnormal [Unknown]
  - Flatulence [Unknown]
  - Drug intolerance [Unknown]
  - Regurgitation [Unknown]
  - Urinary tract infection [Unknown]
  - Sensitive skin [Recovering/Resolving]
  - Contusion [Recovering/Resolving]
  - Abscess limb [Recovering/Resolving]
  - Product use issue [Unknown]

NARRATIVE: CASE EVENT DATE: 20220501
